FAERS Safety Report 12617488 (Version 1)
Quarter: 2016Q3

REPORT INFORMATION
  Report Type: Other
  Country: BR (occurrence: BR)
  Receive Date: 20160803
  Receipt Date: 20160803
  Transmission Date: 20161109
  Serious: No
  Sender: FDA-Public Use
  Company Number: BR-LUPIN PHARMACEUTICALS INC.-2016-02070

PATIENT
  Age: 76 Year
  Sex: Female

DRUGS (1)
  1. MEMANTINE EXTENDED-RELEASE [Suspect]
     Active Substance: MEMANTINE
     Indication: DEMENTIA ALZHEIMER^S TYPE
     Route: 065

REACTIONS (5)
  - Incorrect dose administered [None]
  - Chorea [Recovered/Resolved]
  - Dystonia [Recovered/Resolved]
  - Drug administration error [Unknown]
  - Inappropriate schedule of drug administration [Unknown]
